FAERS Safety Report 11795282 (Version 1)
Quarter: 2015Q4

REPORT INFORMATION
  Report Type: Spontaneous
  Country: FR (occurrence: None)
  Receive Date: 20151202
  Receipt Date: 20151202
  Transmission Date: 20160305
  Serious: Yes (Hospitalization, Other)
  Sender: FDA-Public Use
  Company Number: FR-MDT-ADR-2015-02274

PATIENT
  Age: 62 Year
  Sex: Female

DRUGS (1)
  1. BACLOFEN. [Suspect]
     Active Substance: BACLOFEN
     Indication: ALCOHOLISM
     Dosage: 80 MG, QID

REACTIONS (7)
  - Delirium tremens [None]
  - Hallucination [None]
  - Seizure [None]
  - Autism [None]
  - Hypertonia [None]
  - Abnormal behaviour [None]
  - Coma scale abnormal [None]
